FAERS Safety Report 4792932-X (Version None)
Quarter: 2005Q4

REPORT INFORMATION
  Report Type: 
  Country: None (occurrence: None)
  Receive Date: 20051010
  Receipt Date: 20050920
  Transmission Date: 20060501
  Serious: Yes (Other)
  Sender: FDA-Public Use
  Company Number: PHBS2005ES13875

PATIENT
  Age: 43 Year
  Sex: Female

DRUGS (1)
  1. ELIDEL [Suspect]
     Indication: EYELID OEDEMA
     Dosage: UNK, BID
     Route: 061

REACTIONS (3)
  - APPLICATION SITE IRRITATION [None]
  - CORNEAL LESION [None]
  - VISION BLURRED [None]
